FAERS Safety Report 5604611-7 (Version None)
Quarter: 2008Q1

REPORT INFORMATION
  Report Type: 
  Country: None (occurrence: None)
  Receive Date: 20080128
  Receipt Date: 20080124
  Transmission Date: 20080703
  Serious: Yes (Death)
  Sender: FDA-Public Use
  Company Number: CH-ASTRAZENECA-2008PK00183

PATIENT
  Age: 72 Year
  Sex: Male
  Weight: 75 kg

DRUGS (10)
  1. SEROQUEL [Suspect]
     Indication: DELUSIONAL DISORDER, UNSPECIFIED TYPE
     Route: 048
     Dates: start: 20071227, end: 20080106
  2. EFFEXOR [Suspect]
     Indication: DEPRESSION
     Route: 048
     Dates: end: 20080106
  3. QUILONORM [Suspect]
     Indication: DELUSIONAL DISORDER, UNSPECIFIED TYPE
     Route: 048
  4. NOZINAN [Suspect]
     Indication: DELUSIONAL DISORDER, UNSPECIFIED TYPE
     Route: 048
     Dates: end: 20080106
  5. ZOLPIDEM [Concomitant]
     Indication: SLEEP DISORDER
     Route: 048
     Dates: end: 20080107
  6. LORASIFAR [Concomitant]
     Route: 048
     Dates: end: 20080106
  7. TORAMID [Concomitant]
     Route: 048
     Dates: end: 20080108
  8. COVERSUM [Concomitant]
     Route: 048
     Dates: end: 20080107
  9. ACIDUM FOLICUM STREULI [Concomitant]
     Route: 048
     Dates: end: 20080108
  10. ACETYLCYSTEINE SODIUM [Concomitant]
     Route: 048
     Dates: end: 20080108

REACTIONS (4)
  - HYPERTHERMIA [None]
  - MYOCLONUS [None]
  - SEROTONIN SYNDROME [None]
  - SHOCK [None]
